FAERS Safety Report 15995144 (Version 10)
Quarter: 2020Q3

REPORT INFORMATION
  Report Type: Report from Study
  Country: CN (occurrence: CN)
  Receive Date: 20190222
  Receipt Date: 20200908
  Transmission Date: 20201102
  Serious: Yes (Other)
  Sender: FDA-Public Use
  Company Number: CN-ROCHE-2267632

PATIENT
  Age: 68 Year
  Sex: Male
  Weight: 76 kg

DRUGS (16)
  1. LEUCOGEN (CHINA) [Concomitant]
     Dates: start: 20190320, end: 20190704
  2. KANGFUXIN LIQUID [Concomitant]
     Dosage: PROTECT GASTRIC MUCOSA
     Dates: start: 20190612
  3. LEUCOGEN (CHINA) [Concomitant]
     Indication: THROMBOCYTOPENIA
     Dates: start: 20181219, end: 20190219
  4. HYDROTALCITE [Concomitant]
     Active Substance: HYDROTALCITE
     Dosage: PROTECTIVE GASTRIC MUCOSA
     Dates: start: 20190612, end: 20190704
  5. BEVACIZUMAB. [Suspect]
     Active Substance: BEVACIZUMAB
     Indication: HEPATOCELLULAR CARCINOMA
     Dosage: DATE OF MOST RECENT DOSE (1155 MG) OF BEVACIZUMAB PRIOR TO SAE (FIRST EPISODE OF COENEAL ULCER) ONSE
     Route: 042
     Dates: start: 20181106
  6. IRBESARTAN. [Concomitant]
     Active Substance: IRBESARTAN
     Indication: HYPERTENSION
     Dates: start: 200803
  7. LEUCOGEN (CHINA) [Concomitant]
     Indication: LEUKOPENIA
     Dates: start: 20190318
  8. HIRUDOID [Concomitant]
     Active Substance: GLYCOSAMINOGLYCANS
     Indication: DERMATITIS
     Dates: start: 20190520, end: 20190703
  9. ATEZOLIZUMAB. [Suspect]
     Active Substance: ATEZOLIZUMAB
     Indication: HEPATOCELLULAR CARCINOMA
     Dosage: DATE OF MOST RECENT DOSE OF ATEZOLIZUMAB PRIOR TO SAE (FIRST EPISODE OF CORNEAL ULCER) ONSET 30/JAN/
     Route: 042
     Dates: start: 20181106
  10. ENTECAVIR. [Concomitant]
     Active Substance: ENTECAVIR
     Dates: start: 20181022
  11. POTASSIUM CHLORIDE. [Concomitant]
     Active Substance: POTASSIUM CHLORIDE
     Indication: STOMATITIS
     Dates: start: 20190218
  12. FELODIPINE. [Concomitant]
     Active Substance: FELODIPINE
     Indication: HYPERTENSION
     Dates: start: 200803
  13. STERILE WATER [Concomitant]
     Active Substance: WATER
     Indication: DERMATITIS
     Dates: start: 20190520
  14. OMEPRAZOLE. [Concomitant]
     Active Substance: OMEPRAZOLE
     Dosage: ENTERIC?COATED CAPSULES?ACID SUPPRESSION AND PROTECT THE STOMACH
     Dates: start: 20190603
  15. URSODEOXYCHOLIC ACID [Concomitant]
     Active Substance: URSODIOL
     Dates: start: 20190428
  16. BENZALKONIUM CHLORIDE. [Concomitant]
     Active Substance: BENZALKONIUM CHLORIDE
     Indication: DERMATITIS
     Dates: start: 20190520, end: 20190610

REACTIONS (1)
  - Ulcerative keratitis [Recovered/Resolved]

NARRATIVE: CASE EVENT DATE: 20190212
